FAERS Safety Report 9832012 (Version 1)
Quarter: 2014Q1

REPORT INFORMATION
  Report Type: Report from Study
  Country: AU (occurrence: AU)
  Receive Date: 20140121
  Receipt Date: 20140121
  Transmission Date: 20141002
  Serious: Yes (Death)
  Sender: FDA-Public Use
  Company Number: PHHY2014AU005652

PATIENT
  Age: 47 Year
  Sex: Male

DRUGS (1)
  1. CLOZARIL [Suspect]
     Dosage: 250 MG
     Dates: start: 19990720

REACTIONS (1)
  - Death [Fatal]
